FAERS Safety Report 10189151 (Version 1)
Quarter: 2014Q2

REPORT INFORMATION
  Report Type: Spontaneous
  Country: GB (occurrence: GB)
  Receive Date: 20140522
  Receipt Date: 20140522
  Transmission Date: 20141212
  Serious: Yes (Congenital Anomaly)
  Sender: FDA-Public Use
  Company Number: GB-TEVA-481417ISR

PATIENT
  Sex: 0

DRUGS (1)
  1. CITALOPRAM [Suspect]
     Route: 064

REACTIONS (1)
  - Congenital anomaly [Unknown]
